FAERS Safety Report 9432380 (Version 1)
Quarter: 2013Q3

REPORT INFORMATION
  Report Type: Spontaneous
  Country: BE (occurrence: BE)
  Receive Date: 20130731
  Receipt Date: 20130731
  Transmission Date: 20140515
  Serious: Yes (Other)
  Sender: FDA-Public Use
  Company Number: BE-GENZYME-FABR-1003465

PATIENT
  Age: 68 Year
  Sex: 0

DRUGS (1)
  1. FABRAZYME [Suspect]
     Indication: FABRY^S DISEASE
     Dosage: 1 MG/KG, UNK
     Route: 042
     Dates: start: 20130107

REACTIONS (1)
  - Transient ischaemic attack [Unknown]
